FAERS Safety Report 9473926 (Version 1)
Quarter: 2013Q3

REPORT INFORMATION
  Report Type: Spontaneous
  Country: US (occurrence: US)
  Receive Date: 20130823
  Receipt Date: 20130823
  Transmission Date: 20140515
  Serious: No
  Sender: FDA-Public Use
  Company Number: US-BRISTOL-MYERS SQUIBB COMPANY-17145749

PATIENT
  Age: 28 Year
  Sex: Male
  Weight: 77.55 kg

DRUGS (1)
  1. SPRYCEL [Suspect]
     Indication: CHRONIC MYELOID LEUKAEMIA
     Dosage: STOPPED SPRYCEL FOR 3DAYS
     Dates: start: 20121008

REACTIONS (1)
  - Gastroenteritis viral [Recovered/Resolved]
